FAERS Safety Report 7096520-4 (Version None)
Quarter: 2010Q4

REPORT INFORMATION
  Report Type: 
  Country: None (occurrence: None)
  Receive Date: 20101111
  Receipt Date: 20101101
  Transmission Date: 20110411
  Serious: Yes (Death, Life-Threatening)
  Sender: FDA-Public Use
  Company Number: A0885645A

PATIENT
  Age: 71 Year
  Sex: Male

DRUGS (21)
  1. AVANDIA [Suspect]
     Dosage: 4MG PER DAY
     Route: 048
     Dates: start: 20080801
  2. PREDNISONE [Concomitant]
     Dosage: 5MG PER DAY
  3. ASACOL [Concomitant]
     Dosage: 4TAB TWICE PER DAY
     Route: 065
  4. SPIRIVA [Concomitant]
     Dosage: 1PUFF PER DAY
  5. ALBUTEROL SULFATE AND IPRATROPIUM BROMIDE [Concomitant]
  6. PROAIR HFA [Concomitant]
     Dosage: 2PUFF AS REQUIRED
  7. WELCHOL [Concomitant]
     Dosage: 2TAB TWICE PER DAY
  8. ACTOS [Concomitant]
  9. COREG [Concomitant]
     Dosage: 12.5MG PER DAY
  10. COZAAR [Concomitant]
     Dosage: 50MG PER DAY
  11. ASPIRIN [Concomitant]
     Dosage: 81MG PER DAY
  12. FORTEO [Concomitant]
     Route: 058
  13. DEXLANSOPRAZOLE [Concomitant]
     Dosage: 60MG PER DAY
  14. AVODART [Concomitant]
     Dosage: .5MG PER DAY
  15. INSULIN [Concomitant]
  16. SINGULAIR [Concomitant]
     Dosage: 10MG PER DAY
     Route: 048
  17. VITAMIN D [Concomitant]
  18. XYZAL [Concomitant]
     Dosage: 5MG PER DAY
  19. HYDROXYZINE HCL [Concomitant]
     Dosage: 1TAB AT NIGHT
  20. AMLODIPINE BESYLATE [Concomitant]
     Dosage: 2.5MG PER DAY
  21. ONGLYZA [Concomitant]
     Dosage: 2.5MG IN THE MORNING

REACTIONS (3)
  - ACUTE MYOCARDIAL INFARCTION [None]
  - CHEST PAIN [None]
  - MYOCARDIAL INFARCTION [None]
